FAERS Safety Report 6211426-8 (Version None)
Quarter: 2009Q2

REPORT INFORMATION
  Report Type: 
  Country: None (occurrence: None)
  Receive Date: 20090602
  Receipt Date: 20090522
  Transmission Date: 20091009
  Serious: No
  Sender: FDA-Public Use
  Company Number: JP-ELI_LILLY_AND_COMPANY-JP200903006140

PATIENT
  Sex: Male
  Weight: 66 kg

DRUGS (3)
  1. ZYPREXA [Suspect]
     Indication: SCHIZOPHRENIA
     Dosage: 7.5 MG, DAILY (1/D)
     Route: 048
     Dates: start: 20051208, end: 20070219
  2. ZYPREXA [Suspect]
     Dosage: UNK, DAILY (1/D)
     Route: 048
     Dates: start: 20090514
  3. ZYPREXA [Suspect]
     Dosage: 5 MG, DAILY (1/D)
     Route: 048
     Dates: start: 20070220, end: 20090318

REACTIONS (1)
  - NEUTROPHIL COUNT DECREASED [None]
